FAERS Safety Report 5542067-3 (Version None)
Quarter: 2007Q4

REPORT INFORMATION
  Report Type: 
  Country: None (occurrence: None)
  Receive Date: 20071210
  Receipt Date: 20071203
  Transmission Date: 20080405
  Serious: Yes (Death)
  Sender: FDA-Public Use
  Company Number: JP-ASTRAZENECA-2007SE06235

PATIENT
  Sex: Female
  Weight: 59 kg

DRUGS (10)
  1. BLOPRESS TABLETS 8 [Suspect]
     Indication: ESSENTIAL HYPERTENSION
     Route: 048
     Dates: start: 20060925
  2. BLOPRESS TABLETS 8 [Suspect]
     Route: 048
     Dates: start: 20070219, end: 20070228
  3. ACTOS [Suspect]
     Indication: TYPE 2 DIABETES MELLITUS
     Route: 048
     Dates: start: 20060523, end: 20070228
  4. AMARYL [Suspect]
     Indication: TYPE 2 DIABETES MELLITUS
     Route: 048
     Dates: start: 20061006, end: 20070228
  5. NORVASC [Concomitant]
     Indication: ESSENTIAL HYPERTENSION
     Route: 048
     Dates: start: 20051228
  6. NORVASC [Concomitant]
     Route: 048
     Dates: start: 20060925, end: 20070105
  7. GLYBURIDE [Concomitant]
     Indication: TYPE 2 DIABETES MELLITUS
     Route: 048
     Dates: end: 20061005
  8. ADALAT [Concomitant]
     Indication: ESSENTIAL HYPERTENSION
     Route: 048
     Dates: start: 20060710, end: 20060924
  9. GASTER [Concomitant]
     Route: 048
     Dates: start: 20050224, end: 20070228
  10. MERCAZOLE [Concomitant]
     Route: 048
     Dates: end: 20070228

REACTIONS (1)
  - DEATH [None]
